FAERS Safety Report 25233361 (Version 2)
Quarter: 2025Q3

REPORT INFORMATION
  Report Type: Report from Study
  Country: US (occurrence: US)
  Receive Date: 20250424
  Receipt Date: 20250710
  Transmission Date: 20251020
  Serious: No
  Sender: ACADIA PHARMACEUTICALS
  Company Number: US-ACADIA PHARMACEUTICALS INC.-ACA-2025-PIM-004594

PATIENT
  Sex: Female

DRUGS (14)
  1. NUPLAZID [Suspect]
     Active Substance: PIMAVANSERIN TARTRATE
     Indication: Parkinson^s disease
     Dosage: 34 MILLIGRAM, QD
     Route: 048
     Dates: start: 20230519
  2. ALENDRONATE [Concomitant]
     Active Substance: ALENDRONATE SODIUM
  3. ATORVASTATIN [Concomitant]
     Active Substance: ATORVASTATIN
  4. BELSOMRA [Concomitant]
     Active Substance: SUVOREXANT
  5. CALCIUM [Concomitant]
     Active Substance: CALCIUM
  6. CEVIMELINE [Concomitant]
     Active Substance: CEVIMELINE
  7. CITALOPRAM [Concomitant]
     Active Substance: CITALOPRAM
  8. DONEPEZIL [Concomitant]
     Active Substance: DONEPEZIL
  9. HYDROXYCHLOROQUINE SULFATE [Concomitant]
     Active Substance: HYDROXYCHLOROQUINE SULFATE
  10. LUMIGAN [Concomitant]
     Active Substance: BIMATOPROST
  11. MIRALAX [Concomitant]
     Active Substance: POLYETHYLENE GLYCOL 3350
  12. MYRBETRIQ [Concomitant]
     Active Substance: MIRABEGRON
  13. TIMOPTIC [Concomitant]
     Active Substance: TIMOLOL MALEATE
  14. VITAMIN D3 [Concomitant]
     Active Substance: CHOLECALCIFEROL

REACTIONS (1)
  - Product dose omission issue [Unknown]
